FAERS Safety Report 20925420 (Version 1)
Quarter: 2022Q2

REPORT INFORMATION
  Report Type: Spontaneous
  Country: FR (occurrence: FR)
  Receive Date: 20220607
  Receipt Date: 20220607
  Transmission Date: 20220720
  Serious: Yes (Other)
  Sender: FDA-Public Use
  Company Number: None

PATIENT
  Age: 17 Year
  Sex: Male

DRUGS (2)
  1. LYRICA [Suspect]
     Active Substance: PREGABALIN
     Dosage: 2100 MG DURING THE EPISODE
     Route: 048
  2. RIVOTRIL [Suspect]
     Active Substance: CLONAZEPAM
     Dosage: 13 MG DURING THE EPISODE
     Route: 048

REACTIONS (3)
  - Overdose [Not Recovered/Not Resolved]
  - Drug use disorder [Not Recovered/Not Resolved]
  - Poisoning [Recovered/Resolved]
